FAERS Safety Report 21519297 (Version 1)
Quarter: 2022Q4

REPORT INFORMATION
  Report Type: Spontaneous
  Country: US (occurrence: None)
  Receive Date: 20221027
  Receipt Date: 20221027
  Transmission Date: 20230113
  Serious: Yes (Other)
  Sender: FDA-Public Use
  Company Number: None

PATIENT
  Age: 81 Year
  Sex: Female
  Weight: 77.56 kg

DRUGS (12)
  1. FEBUXOSTAT [Suspect]
     Active Substance: FEBUXOSTAT
     Indication: Blood uric acid abnormal
     Dosage: FREQUENCY : DAILY;?
     Route: 048
     Dates: start: 20220109, end: 20220609
  2. ALLOPURINOL [Concomitant]
     Active Substance: ALLOPURINOL
  3. CARVEDILOL [Concomitant]
     Active Substance: CARVEDILOL
  4. COLCHICINE [Concomitant]
     Active Substance: COLCHICINE
  5. ELIQUIS [Concomitant]
     Active Substance: APIXABAN
  6. EZETIMIBE [Concomitant]
     Active Substance: EZETIMIBE
  7. IRON [Concomitant]
     Active Substance: IRON
  8. FUROSEMIDE [Concomitant]
     Active Substance: FUROSEMIDE
  9. LIVALO [Concomitant]
     Active Substance: PITAVASTATIN CALCIUM
  10. LOSARTAN [Concomitant]
     Active Substance: LOSARTAN
  11. AREDS PRESWERVISON [Concomitant]
  12. CINNAM,ON PILLS [Concomitant]

REACTIONS (4)
  - Diarrhoea [None]
  - Dyspnoea [None]
  - Pain [None]
  - Gout [None]

NARRATIVE: CASE EVENT DATE: 20220903
